FAERS Safety Report 15284863 (Version 1)
Quarter: 2018Q3

REPORT INFORMATION
  Report Type: Spontaneous
  Country: US (occurrence: US)
  Receive Date: 20180801
  Receipt Date: 20180801
  Transmission Date: 20181010
  Serious: Yes (Hospitalization)
  Sender: FDA-Public Use
  Company Number: None

PATIENT
  Age: 38 Year
  Sex: Male
  Weight: 102.8 kg

DRUGS (1)
  1. LORAZEPAM. [Suspect]
     Active Substance: LORAZEPAM
     Indication: WITHDRAWAL SYNDROME
     Route: 048
     Dates: start: 20180401, end: 20180403

REACTIONS (3)
  - Agitation [None]
  - Anxiety [None]
  - Delirium [None]

NARRATIVE: CASE EVENT DATE: 20180402
